FAERS Safety Report 7866005-3 (Version None)
Quarter: 2011Q4

REPORT INFORMATION
  Report Type: 
  Country: None (occurrence: None)
  Receive Date: 20111028
  Receipt Date: 20110406
  Transmission Date: 20120403
  Serious: No
  Sender: FDA-Public Use
  Company Number: US-GLAXOSMITHKLINE-A0921667A

PATIENT
  Age: 30 Year
  Sex: Female

DRUGS (2)
  1. ADVAIR DISKUS 100/50 [Suspect]
     Indication: ASTHMA
     Route: 055
  2. PROAIR HFA [Concomitant]

REACTIONS (2)
  - CONDITION AGGRAVATED [None]
  - PRODUCT QUALITY ISSUE [None]
